FAERS Safety Report 10637985 (Version 1)
Quarter: 2014Q4

REPORT INFORMATION
  Report Type: Spontaneous
  Country: IN (occurrence: IN)
  Receive Date: 20141208
  Receipt Date: 20141208
  Transmission Date: 20150529
  Serious: Yes (Other)
  Sender: FDA-Public Use
  Company Number: PHHY2014IN156614

PATIENT
  Age: 54 Year
  Sex: Male

DRUGS (4)
  1. ISONIAZID. [Suspect]
     Active Substance: ISONIAZID
     Indication: PULMONARY TUBERCULOSIS
     Route: 065
  2. RIFAMPICIN [Concomitant]
     Active Substance: RIFAMPIN
     Indication: PULMONARY TUBERCULOSIS
     Route: 065
  3. PYRAZINAMIDE. [Concomitant]
     Active Substance: PYRAZINAMIDE
     Indication: PULMONARY TUBERCULOSIS
     Route: 065
  4. LEVOFLOXACIN. [Concomitant]
     Active Substance: LEVOFLOXACIN
     Indication: PULMONARY TUBERCULOSIS
     Route: 065

REACTIONS (13)
  - Cerebellar ataxia [Recovering/Resolving]
  - Encephalitis [Recovering/Resolving]
  - Pallor [Recovering/Resolving]
  - Psychotic disorder [Recovering/Resolving]
  - Gait disturbance [Recovering/Resolving]
  - Autoimmune haemolytic anaemia [Recovering/Resolving]
  - Psychiatric symptom [Recovering/Resolving]
  - Suicide attempt [Recovering/Resolving]
  - Dysarthria [Recovering/Resolving]
  - Transaminases increased [Recovering/Resolving]
  - Abnormal behaviour [Recovering/Resolving]
  - Vomiting [Recovering/Resolving]
  - Toxicity to various agents [Recovering/Resolving]
